APPROVED DRUG PRODUCT: PACLITAXEL
Active Ingredient: PACLITAXEL
Strength: 6MG/ML
Dosage Form/Route: INJECTABLE;INJECTION
Application: A090130 | Product #001 | TE Code: AP
Applicant: ACTAVIS TOTOWA LLC
Approved: Dec 9, 2009 | RLD: No | RS: No | Type: RX